FAERS Safety Report 14780070 (Version 3)
Quarter: 2018Q2

REPORT INFORMATION
  Report Type: Not Available
  Country: US (occurrence: US)
  Receive Date: 20180419
  Receipt Date: 20180605
  Transmission Date: 20180711
  Serious: No
  Sender: FDA-Public Use
  Company Number: US-NEUROCRINE BIOSCIENCES INC.-2018NBI00696

PATIENT
  Sex: Female

DRUGS (2)
  1. INGREZZA [Suspect]
     Active Substance: VALBENAZINE
     Route: 048
     Dates: start: 20171110
  2. INGREZZA [Suspect]
     Active Substance: VALBENAZINE
     Indication: MOVEMENT DISORDER
     Route: 048
     Dates: start: 20171102, end: 20171109

REACTIONS (4)
  - Memory impairment [Unknown]
  - Burning sensation [Not Recovered/Not Resolved]
  - Gait disturbance [Not Recovered/Not Resolved]
  - Mallet finger [Not Recovered/Not Resolved]
